FAERS Safety Report 9768883 (Version 1)
Quarter: 2013Q3

REPORT INFORMATION
  Report Type: Spontaneous
  Country: FR (occurrence: None)
  Receive Date: 20130828
  Receipt Date: 20130828
  Transmission Date: 20140515
  Serious: Yes (Hospitalization)
  Sender: FDA-Public Use
  Company Number: 056-21880-13033806

PATIENT
  Age: 62 Year
  Sex: Male
  Weight: 78 kg

DRUGS (7)
  1. REVLIMID [Suspect]
     Indication: LYMPHOMA
     Route: 048
     Dates: start: 20130305, end: 20130319
  2. RITUXIMAB [Suspect]
     Indication: LYMPHOMA
     Dates: start: 20130304, end: 20130320
  3. KARDEGIC (ACETYLSALICYLATE LYSINE) [Concomitant]
  4. ZYLORIC (ALLOPURINOL) [Concomitant]
  5. FLECAINE (FLECAINIDE ACETATE) [Concomitant]
  6. ROCEPHINE (CEFTRIAXONE) [Concomitant]
  7. LEVOCETIRIZINE DIHYDROCHLORIDE [Concomitant]

REACTIONS (12)
  - Drug hypersensitivity [None]
  - Angina pectoris [None]
  - Troponin increased [None]
  - Brugada syndrome [None]
  - Rash macular [None]
  - Rash papular [None]
  - Brain natriuretic peptide increased [None]
  - White blood cell count decreased [None]
  - Neutrophil count decreased [None]
  - Arthritis [None]
  - Congestive cardiomyopathy [None]
  - Bundle branch block right [None]
